FAERS Safety Report 19638596 (Version 1)
Quarter: 2021Q3

REPORT INFORMATION
  Report Type: Report from Study
  Country: CN (occurrence: CN)
  Receive Date: 20210730
  Receipt Date: 20210730
  Transmission Date: 20211014
  Serious: Yes (Death, Hospitalization)
  Sender: FDA-Public Use
  Company Number: CN-TEVA-2021-CN-1939006

PATIENT
  Age: 58 Year
  Sex: Male
  Weight: 54.5 kg

DRUGS (27)
  1. BENDAMUSTINE [Suspect]
     Active Substance: BENDAMUSTINE
     Indication: DIFFUSE LARGE B-CELL LYMPHOMA
     Dosage: 90 MG/M2 ON DAY 2 AND 3 OF CYCLE 1 AND DAY 1 AND 2 OF CYCLES 2?6; 148.5 MG EVERY 21 DAYS; LAST DOSE
     Route: 042
     Dates: start: 20200827
  2. PALONOSETRON. [Concomitant]
     Active Substance: PALONOSETRON HYDROCHLORIDE
     Dates: start: 20200916, end: 20200917
  3. DIPHENHYDRAMINE. [Concomitant]
     Active Substance: DIPHENHYDRAMINE
     Dates: start: 20200916, end: 20200916
  4. CIMETIDINE [Concomitant]
     Active Substance: CIMETIDINE
     Dates: start: 20200826, end: 20200827
  5. MEDROXYPROGESTERONE [Concomitant]
     Active Substance: MEDROXYPROGESTERONE
     Indication: DECREASED APPETITE
     Dates: start: 20200901
  6. IRBESARTAN. [Concomitant]
     Active Substance: IRBESARTAN
     Indication: HYPERTENSION
  7. GAMMA GLOBULIN [Concomitant]
     Active Substance: IMMUNE GLOBULIN NOS
     Dates: start: 20200917, end: 20200917
  8. CELECOXIB. [Concomitant]
     Active Substance: CELECOXIB
     Dates: start: 20200826, end: 20200827
  9. PALONOSETRON. [Concomitant]
     Active Substance: PALONOSETRON HYDROCHLORIDE
     Dates: start: 20200827, end: 20200828
  10. METOCLOPRAMIDE. [Concomitant]
     Active Substance: METOCLOPRAMIDE
     Indication: NAUSEA
     Dates: start: 20200901, end: 20200907
  11. COTRIMOXAZOLE [Concomitant]
     Active Substance: SULFAMETHOXAZOLE\TRIMETHOPRIM
     Dates: start: 20200825
  12. CIMETIDINE [Concomitant]
     Active Substance: CIMETIDINE
     Dates: start: 20200916, end: 20200916
  13. DIPHENHYDRAMINE. [Concomitant]
     Active Substance: DIPHENHYDRAMINE
     Dates: start: 20200826, end: 20200827
  14. HEPARIN [Concomitant]
     Active Substance: HEPARIN SODIUM
     Dates: start: 20200826, end: 20200826
  15. LORATADINE. [Concomitant]
     Active Substance: LORATADINE
     Dates: start: 20200909, end: 20200912
  16. GAMMA GLOBULIN [Concomitant]
     Active Substance: IMMUNE GLOBULIN NOS
     Dates: start: 20200828, end: 20200828
  17. DEXAMETHASONE. [Concomitant]
     Active Substance: DEXAMETHASONE
     Dosage: 10 MILLIGRAM DAILY;
     Route: 042
     Dates: start: 20200916, end: 20200916
  18. FEBUXOSTAT. [Concomitant]
     Active Substance: FEBUXOSTAT
     Indication: HYPERURICAEMIA
     Dates: start: 20200825
  19. PARACETAMOL [Concomitant]
     Active Substance: ACETAMINOPHEN
     Dates: start: 20200915
  20. OLANZAPINE. [Concomitant]
     Active Substance: OLANZAPINE
     Indication: NAUSEA
     Dates: start: 20200916, end: 20200916
  21. ZOLPIDEM [Concomitant]
     Active Substance: ZOLPIDEM TARTRATE
     Dosage: 10 MILLIGRAM DAILY;
  22. RITUXIMAB. [Suspect]
     Active Substance: RITUXIMAB
     Indication: DIFFUSE LARGE B-CELL LYMPHOMA
     Dosage: LAST DOSE ADMINISTRATED BEFORE AE WAS ON 16?SEP?2020; 375 MG/M2 A TOTAL OF 6 CYCLE ON DAY 1 OF EACH
     Route: 041
     Dates: start: 20200826
  23. AMLODIPINE BESYLATE. [Concomitant]
     Active Substance: AMLODIPINE BESYLATE
     Indication: HYPERTENSION
  24. ZOLPIDEM TARTRATE. [Concomitant]
     Active Substance: ZOLPIDEM TARTRATE
     Dates: start: 20200929, end: 20201005
  25. CELECOXIB. [Concomitant]
     Active Substance: CELECOXIB
     Dates: start: 20200916, end: 20200916
  26. DEXAMETHASONE. [Concomitant]
     Active Substance: DEXAMETHASONE
     Dosage: 10 MILLIGRAM DAILY;
     Route: 042
     Dates: start: 20200826, end: 20200827
  27. PARACETAMOL [Concomitant]
     Active Substance: ACETAMINOPHEN
     Indication: NECK PAIN
     Dates: start: 20200825, end: 20200829

REACTIONS (1)
  - Upper gastrointestinal haemorrhage [Recovered/Resolved]

NARRATIVE: CASE EVENT DATE: 20200918
